FAERS Safety Report 11905964 (Version 1)
Quarter: 2016Q1

REPORT INFORMATION
  Report Type: Spontaneous
  Country: US (occurrence: US)
  Receive Date: 20160111
  Receipt Date: 20160111
  Transmission Date: 20160526
  Serious: No
  Sender: FDA-Public Use
  Company Number: US-ASTRAZENECA-2015SF31893

PATIENT
  Sex: Male
  Weight: 85.7 kg

DRUGS (1)
  1. FARXIGA [Suspect]
     Active Substance: DAPAGLIFLOZIN PROPANEDIOL
     Indication: DIABETES MELLITUS
     Route: 048

REACTIONS (4)
  - Glossodynia [Recovered/Resolved]
  - Drug hypersensitivity [Recovered/Resolved]
  - Tongue discolouration [Recovered/Resolved]
  - Oral pain [Recovered/Resolved]
